FAERS Safety Report 5122120-9 (Version None)
Quarter: 2006Q4

REPORT INFORMATION
  Report Type: 
  Country: None (occurrence: None)
  Receive Date: 20061004
  Receipt Date: 20061004
  Transmission Date: 20070319
  Serious: Yes (Hospitalization)
  Sender: FDA-Public Use
  Company Number: None

PATIENT
  Age: 66 Year
  Sex: Male

DRUGS (1)
  1. GEMCITABINE [Suspect]
     Indication: CHEMOTHERAPY
     Dosage: 2200MG IV
     Route: 042
     Dates: start: 20060815, end: 20060815

REACTIONS (8)
  - DRY SKIN [None]
  - EPISTAXIS [None]
  - HAEMATOCRIT DECREASED [None]
  - HAEMOGLOBIN DECREASED [None]
  - INTERNATIONAL NORMALISED RATIO INCREASED [None]
  - PLATELET COUNT DECREASED [None]
  - SWELLING [None]
  - WHITE BLOOD CELL COUNT DECREASED [None]
